FAERS Safety Report 7927482-2 (Version None)
Quarter: 2011Q4

REPORT INFORMATION
  Report Type: 
  Country: None (occurrence: None)
  Receive Date: 20111118
  Receipt Date: 20111115
  Transmission Date: 20120403
  Serious: Yes (Hospitalization, Congenital Anomaly, Other)
  Sender: FDA-Public Use
  Company Number: US-PFIZER INC-2011151131

PATIENT
  Sex: Male
  Weight: 4 kg

DRUGS (9)
  1. ZOLOFT [Suspect]
     Dosage: 25 MG, UNK
     Route: 064
     Dates: start: 20031104
  2. IBUPROFEN (ADVIL) [Concomitant]
     Dosage: 800 MG, AS NEEDED
     Route: 064
  3. SERTRALINE HYDROCHLORIDE [Suspect]
     Dosage: 50 MG, 1X/DAY
     Route: 064
     Dates: start: 20070110
  4. VENTOLIN [Concomitant]
     Dosage: UNK
     Route: 064
  5. PREVACID [Concomitant]
     Indication: GASTROOESOPHAGEAL REFLUX DISEASE
     Dosage: 30 MG, DAILY
     Route: 064
     Dates: start: 20061206
  6. ZOMIG [Concomitant]
     Dosage: 2.5 MG, AS NEEDED
     Route: 064
     Dates: start: 20061206
  7. ELAVIL [Concomitant]
     Dosage: 10 MG, 1X/DAY (AT BEDTIME)
     Route: 064
  8. HEPARIN [Concomitant]
     Indication: DEEP VEIN THROMBOSIS
     Dosage: 5000 UNITS, 2X/DAY
     Route: 064
  9. TOPAMAX [Concomitant]
     Dosage: UNK
     Route: 064

REACTIONS (28)
  - ATRIOVENTRICULAR SEPTAL DEFECT [None]
  - PNEUMONIA [None]
  - CARDIOMEGALY [None]
  - SINUSITIS [None]
  - PULMONARY ARTERY ATRESIA [None]
  - HEART DISEASE CONGENITAL [None]
  - PSEUDOMONAS INFECTION [None]
  - HEART VALVE INCOMPETENCE [None]
  - CONJUNCTIVITIS [None]
  - AORTIC VALVE INCOMPETENCE [None]
  - OTITIS MEDIA [None]
  - ABDOMINAL DISTENSION [None]
  - TRANSPOSITION OF THE GREAT VESSELS [None]
  - STAPHYLOCOCCAL INFECTION [None]
  - INFLUENZA [None]
  - FAILURE TO THRIVE [None]
  - ATRIAL TACHYCARDIA [None]
  - SPEECH DISORDER DEVELOPMENTAL [None]
  - FOETAL EXPOSURE DURING PREGNANCY [None]
  - ANOMALOUS PULMONARY VENOUS CONNECTION [None]
  - PROCEDURAL COMPLICATION [None]
  - CARDIAC FAILURE CONGESTIVE [None]
  - SUPRAVENTRICULAR TACHYCARDIA [None]
  - COUGH [None]
  - HETEROTAXIA [None]
  - VENTRICULAR SEPTAL DEFECT [None]
  - GASTRITIS [None]
  - ASTHMA [None]
